FAERS Safety Report 15622192 (Version 2)
Quarter: 2018Q4

REPORT INFORMATION
  Report Type: Spontaneous
  Country: JP (occurrence: JP)
  Receive Date: 20181115
  Receipt Date: 20181120
  Transmission Date: 20190205
  Serious: Yes (Hospitalization)
  Sender: FDA-Public Use
  Company Number: JP-PFIZER INC-2018461660

PATIENT
  Age: 80 Year
  Sex: Female

DRUGS (1)
  1. LYRICA [Suspect]
     Active Substance: PREGABALIN
     Dosage: 75 MG, SINGLE
     Route: 048

REACTIONS (3)
  - Asthenia [Recovered/Resolved]
  - Prescription drug used without a prescription [Unknown]
  - Dysstasia [Recovered/Resolved]
